FAERS Safety Report 10301732 (Version 3)
Quarter: 2014Q4

REPORT INFORMATION
  Report Type: Spontaneous
  Country: IT (occurrence: IT)
  Receive Date: 20140714
  Receipt Date: 20141119
  Transmission Date: 20150528
  Serious: Yes (Other)
  Sender: FDA-Public Use
  Company Number: IT-MERCK-1407ITA004819

PATIENT
  Age: 59 Year
  Sex: Female
  Weight: 68 kg

DRUGS (4)
  1. COPEGUS [Suspect]
     Active Substance: RIBAVIRIN
     Indication: HEPATITIS C
     Dosage: UNK, QD
     Route: 048
     Dates: start: 20140127, end: 20140709
  2. EPREX [Suspect]
     Active Substance: ERYTHROPOIETIN
     Indication: ANAEMIA
     Dosage: 40000 IU, QW
     Route: 058
     Dates: start: 20140225, end: 20140709
  3. PEGASYS [Suspect]
     Active Substance: PEGINTERFERON ALFA-2A
     Indication: HEPATITIS C
     Dosage: 180 MCG WEEKLY
     Route: 058
     Dates: start: 20140124, end: 20140706
  4. VICTRELIS [Suspect]
     Active Substance: BOCEPREVIR
     Indication: HEPATITIS C
     Dosage: UNK, QD
     Route: 048
     Dates: start: 20140221, end: 20140708

REACTIONS (2)
  - Anaemia [Recovering/Resolving]
  - Transfusion [Unknown]

NARRATIVE: CASE EVENT DATE: 2014
